FAERS Safety Report 12718299 (Version 1)
Quarter: 2016Q3

REPORT INFORMATION
  Report Type: Spontaneous
  Country: IT (occurrence: IT)
  Receive Date: 20160906
  Receipt Date: 20160906
  Transmission Date: 20161109
  Serious: Yes (Congenital Anomaly, Other)
  Sender: FDA-Public Use
  Company Number: IT-GILEAD-2014-0106943

PATIENT
  Sex: Male
  Weight: 2.52 kg

DRUGS (3)
  1. REYATAZ [Suspect]
     Active Substance: ATAZANAVIR SULFATE
     Indication: PROPHYLAXIS AGAINST HIV INFECTION
     Dosage: UNK
     Route: 064
     Dates: end: 2009
  2. EMTRIVA [Suspect]
     Active Substance: EMTRICITABINE
     Indication: PROPHYLAXIS AGAINST HIV INFECTION
     Dosage: UNK
     Route: 064
     Dates: end: 2009
  3. VIREAD [Suspect]
     Active Substance: TENOFOVIR DISOPROXIL FUMARATE
     Indication: PROPHYLAXIS AGAINST HIV INFECTION
     Route: 064

REACTIONS (2)
  - Cryptorchism [Unknown]
  - Foetal exposure during pregnancy [Unknown]
